FAERS Safety Report 8587246-6 (Version None)
Quarter: 2012Q3

REPORT INFORMATION
  Report Type: 
  Country: None (occurrence: None)
  Receive Date: 20120810
  Receipt Date: 20110825
  Transmission Date: 20120928
  Serious: No
  Sender: FDA-Public Use
  Company Number: US-ASTRAZENECA-2011SE51592

PATIENT
  Sex: Female

DRUGS (20)
  1. RESTEROL [Concomitant]
  2. ZOMETA [Concomitant]
  3. EMEND [Concomitant]
  4. CENTRUM MATURE DAILY MULTI [Concomitant]
  5. ASCORBIC ACID [Concomitant]
  6. VITAMIN D [Concomitant]
  7. IBUPROFEN [Concomitant]
  8. TAXOTERE [Concomitant]
  9. NEULASTA [Concomitant]
  10. CYTOXAN [Concomitant]
  11. ASPIRIN [Concomitant]
  12. ARIMIDEX [Suspect]
     Route: 048
     Dates: start: 20101207
  13. ZORCOR [Concomitant]
  14. LISINOPRIL AND HYDROCHLOROTHIAZIDE [Suspect]
     Dosage: 20+25 MG DAILY
     Route: 048
     Dates: start: 20110228
  15. GENERIC CALTRATE+D3 [Concomitant]
  16. TYLENOL ES [Concomitant]
  17. ARANESP [Concomitant]
  18. ZYRTEC [Concomitant]
  19. VITAMIN E [Concomitant]
  20. ZANTAC [Concomitant]

REACTIONS (1)
  - SEASONAL ALLERGY [None]
